FAERS Safety Report 5029193-2 (Version None)
Quarter: 2006Q2

REPORT INFORMATION
  Report Type: 
  Country: None (occurrence: None)
  Receive Date: 20060615
  Receipt Date: 20060615
  Transmission Date: 20061013
  Serious: Yes (Other)
  Sender: FDA-Public Use
  Company Number: None

PATIENT
  Sex: Female
  Weight: 79.8331 kg

DRUGS (1)
  1. KETEK [Suspect]
     Indication: SINUSITIS
     Dosage: PHARMACEUTICAL SAMPLE DOSE ONCE PO
     Route: 048
     Dates: start: 20060602, end: 20060602

REACTIONS (7)
  - CHROMATURIA [None]
  - DIZZINESS [None]
  - HEPATOCELLULAR DAMAGE [None]
  - JAUNDICE [None]
  - LIVER DISORDER [None]
  - MALAISE [None]
  - WEIGHT DECREASED [None]
